FAERS Safety Report 14275776 (Version 1)
Quarter: 2017Q4

REPORT INFORMATION
  Report Type: Report from Study
  Country: FR (occurrence: FR)
  Receive Date: 20171212
  Receipt Date: 20171212
  Transmission Date: 20180321
  Serious: Yes (Death, Hospitalization, Other)
  Sender: FDA-Public Use
  Company Number: FR-ROCHE-1633306

PATIENT
  Age: 57 Year
  Sex: Female

DRUGS (11)
  1. SYMBICORT [Concomitant]
     Active Substance: BUDESONIDE\FORMOTEROL FUMARATE DIHYDRATE
     Route: 065
  2. SALAZOPYRINE [Concomitant]
     Active Substance: SULFASALAZINE
     Route: 065
     Dates: start: 20130124
  3. TOCILIZUMAB. [Suspect]
     Active Substance: TOCILIZUMAB
     Indication: RHEUMATOID ARTHRITIS
     Dosage: RECEIVED ON 27/APR/2012, 30/MAY/2012, 02/JUL/2012, 30/JUL/2012, 30/AUG/2012, 28/SEP/2012, 26/OCT/20
     Route: 042
     Dates: start: 20120326, end: 20130410
  4. INEXIUM [Concomitant]
     Active Substance: ESOMEPRAZOLE
     Route: 065
  5. SALAZOPYRINE [Concomitant]
     Active Substance: SULFASALAZINE
     Route: 065
  6. LEFLUNOMIDE. [Concomitant]
     Active Substance: LEFLUNOMIDE
     Route: 065
  7. LYRICA [Concomitant]
     Active Substance: PREGABALIN
     Route: 065
  8. CORTANCYL [Concomitant]
     Active Substance: PREDNISONE
     Route: 065
  9. CORTANCYL [Concomitant]
     Active Substance: PREDNISONE
     Route: 065
  10. TELFAST D [Concomitant]
     Active Substance: FEXOFENADINE HYDROCHLORIDE\PSEUDOEPHEDRINE HYDROCHLORIDE
     Route: 065
  11. LAMALINE [Concomitant]
     Active Substance: ACETAMINOPHEN\CAFFEINE\OPIUM
     Dosage: 1 TO 2 DF QD
     Route: 065

REACTIONS (12)
  - Pyrexia [Recovered/Resolved]
  - Fistula [Recovered/Resolved]
  - Sputum abnormal [Recovered/Resolved]
  - Rhinitis [Recovered/Resolved]
  - Aspergilloma [Fatal]
  - Basal cell carcinoma [Recovered/Resolved]
  - Bronchitis [Recovered/Resolved]
  - Sinusitis [Recovered/Resolved]
  - Pneumocystis jirovecii pneumonia [Recovered/Resolved]
  - Carbon monoxide diffusing capacity decreased [Recovered/Resolved]
  - Bursitis [Recovered/Resolved]
  - Respiratory failure [Recovered/Resolved]

NARRATIVE: CASE EVENT DATE: 201205
